FAERS Safety Report 5274067-5 (Version None)
Quarter: 2007Q1

REPORT INFORMATION
  Report Type: 
  Country: None (occurrence: None)
  Receive Date: 20070323
  Receipt Date: 20070313
  Transmission Date: 20070707
  Serious: Yes (Death)
  Sender: FDA-Public Use
  Company Number: CA-MERCK-0703CAN00132

PATIENT

DRUGS (3)
  1. PRIMAXIN [Suspect]
     Indication: PSEUDOMONAS INFECTION
     Route: 041
  2. TOBRAMYCIN [Concomitant]
     Indication: PSEUDOMONAS INFECTION
     Route: 065
  3. MEROPENEM [Concomitant]
     Indication: PSEUDOMONAS INFECTION
     Route: 065

REACTIONS (1)
  - DEATH [None]
